FAERS Safety Report 5371266-9 (Version None)
Quarter: 2007Q2

REPORT INFORMATION
  Report Type: 
  Country: None (occurrence: None)
  Receive Date: 20070615
  Receipt Date: 20070329
  Transmission Date: 20071010
  Serious: Yes (Other)
  Sender: FDA-Public Use
  Company Number: 200712418US

PATIENT
  Age: 34 Year
  Sex: Female

DRUGS (3)
  1. LANTUS [Suspect]
     Dosage: INJ
     Dates: start: 20060101
  2. OPTICLIK [Suspect]
     Dates: start: 20060101
  3. OTHER MEDICATIONS NOS [Concomitant]

REACTIONS (4)
  - HYPERGLYCAEMIA [None]
  - ILL-DEFINED DISORDER [None]
  - MALAISE [None]
  - VISION BLURRED [None]
